APPROVED DRUG PRODUCT: GATIFLOXACIN
Active Ingredient: GATIFLOXACIN
Strength: 0.5%
Dosage Form/Route: SOLUTION/DROPS;OPHTHALMIC
Application: A213542 | Product #001 | TE Code: AT
Applicant: CAPLIN STERILES LTD
Approved: Nov 3, 2021 | RLD: No | RS: No | Type: RX